FAERS Safety Report 7232498-8 (Version None)
Quarter: 2011Q1

REPORT INFORMATION
  Report Type: 
  Country: None (occurrence: None)
  Receive Date: 20110119
  Receipt Date: 20110106
  Transmission Date: 20110831
  Serious: Yes (Hospitalization)
  Sender: FDA-Public Use
  Company Number: GXKR2010DK06798

PATIENT
  Sex: Female

DRUGS (8)
  1. DICLOXACILLIN [Interacting]
     Dosage: 1 G, TID
     Route: 042
  2. XARELTO [Interacting]
     Indication: THROMBOSIS PROPHYLAXIS
     Dosage: 10 MG/DAY
     Route: 048
  3. VANCOMYCIN [Concomitant]
     Dosage: UNK
     Dates: start: 20100705
  4. DICLOXACILLIN [Interacting]
     Indication: PROPHYLAXIS
     Dosage: 2 G, UNK
     Route: 042
  5. RAMIPRIL [Concomitant]
  6. GENTAMICIN [Interacting]
     Indication: PROPHYLAXIS
     Dosage: 40 MG/ML, UNK
     Route: 042
  7. DICLOXACILLIN [Suspect]
     Indication: PROPHYLAXIS
     Dosage: 2 G/DAY
     Route: 042
     Dates: start: 20100610
  8. DIGOXIN [Concomitant]

REACTIONS (4)
  - BLOOD CREATININE INCREASED [None]
  - RENAL TUBULAR DISORDER [None]
  - DRUG INTERACTION [None]
  - BLOOD UREA INCREASED [None]
